FAERS Safety Report 4584828-3 (Version None)
Quarter: 2005Q1

REPORT INFORMATION
  Report Type: 
  Country: None (occurrence: None)
  Receive Date: 20050214
  Receipt Date: 20050204
  Transmission Date: 20050727
  Serious: Yes (Other)
  Sender: FDA-Public Use
  Company Number: 2005-124998-NL

PATIENT

DRUGS (1)
  1. ZEMURON [Suspect]
     Indication: NEUROMUSCULAR BLOCKADE
     Dosage: 100 MG INTRAVENOUS (NOS)
     Dates: start: 20050203, end: 20050203

REACTIONS (1)
  - PARALYSIS [None]
